FAERS Safety Report 5878462-2 (Version None)
Quarter: 2008Q3

REPORT INFORMATION
  Report Type: 
  Country: None (occurrence: None)
  Receive Date: 20080910
  Receipt Date: 20080831
  Transmission Date: 20090109
  Serious: Yes (Other)
  Sender: FDA-Public Use
  Company Number: CHPA2008US14602

PATIENT
  Age: 46 Year
  Sex: Female

DRUGS (2)
  1. NICOTINE [Suspect]
     Indication: SMOKING CESSATION THERAPY
     Dosage: 21 MG, QD, TRANSDERMAL
     Route: 062
     Dates: start: 20080808, end: 20080827
  2. GEODON (ZIPRASIDONE HYDROCHLORIDE) [Concomitant]

REACTIONS (9)
  - ANXIETY [None]
  - BACK PAIN [None]
  - CONDITION AGGRAVATED [None]
  - DEPRESSION [None]
  - MOOD SWINGS [None]
  - MUSCULOSKELETAL PAIN [None]
  - SUICIDAL IDEATION [None]
  - TENSION [None]
  - TREATMENT NONCOMPLIANCE [None]
